FAERS Safety Report 10470512 (Version 2)
Quarter: 2014Q3

REPORT INFORMATION
  Report Type: Spontaneous
  Country: CH (occurrence: CH)
  Receive Date: 20140923
  Receipt Date: 20140923
  Transmission Date: 20150326
  Serious: Yes (Other)
  Sender: FDA-Public Use
  Company Number: CH-PFIZER INC-2014054913

PATIENT
  Sex: Female
  Weight: 2.41 kg

DRUGS (13)
  1. BRUFEN [Suspect]
     Active Substance: IBUPROFEN
     Dosage: 400 MG, 2X/DAY
     Route: 064
     Dates: start: 201311, end: 201311
  2. AUGMENTIN [Concomitant]
     Active Substance: AMOXICILLIN\CLAVULANATE POTASSIUM
     Dosage: 625 MG, 3X/DAY
     Route: 064
     Dates: start: 201311, end: 201311
  3. CYTOTEC [Suspect]
     Active Substance: MISOPROSTOL
     Indication: ABORTION
     Dosage: UNK
     Route: 064
     Dates: start: 20131115, end: 20131115
  4. AXOTIDE [Suspect]
     Active Substance: FLUTICASONE PROPIONATE
     Dosage: 250 UG, 2X/DAY
     Route: 064
     Dates: end: 201311
  5. MIFEGYNE [Suspect]
     Active Substance: MIFEPRISTONE
     Indication: ABORTION
     Dosage: 600 MG, SINGLE
     Route: 064
  6. DAFALGAN [Concomitant]
     Active Substance: ACETAMINOPHEN
     Dosage: 1 G, 3X/DAY
     Route: 064
  7. MOTILIUM ^JANSSEN-CILAG^ [Suspect]
     Active Substance: MORPHINE SULFATE
     Dosage: 10 MG, 4X/DAY
     Route: 064
     Dates: start: 201311, end: 201311
  8. SERETIDE [Suspect]
     Active Substance: FLUTICASONE FUROATE\SALMETEROL XINAFOATE
     Dosage: 500UG/50UG, 2X/DAY
     Route: 064
  9. TARDYFERON [Concomitant]
     Active Substance: FERROUS SULFATE\FOLIC ACID
     Dosage: 80 MG, 1X/DAY
     Route: 064
  10. FLUOXETIN ^BIOCHEMIE^ [Suspect]
     Active Substance: FLUOXETINE\FLUOXETINE HYDROCHLORIDE
     Dosage: 40 MG, 1X/DAY
     Route: 064
     Dates: start: 2013
  11. SOLMUCALM [Suspect]
     Active Substance: ACETYLCYSTEINE\CHLORPHENIRAMINE MALEATE
     Dosage: 10 ML, 3X/DAY
     Route: 064
     Dates: start: 201311, end: 201311
  12. ELEVIT PRONATAL [Concomitant]
     Dosage: 1 DF, 1X/DAY
     Route: 064
  13. FLUOXETIN ^BIOCHEMIE^ [Suspect]
     Active Substance: FLUOXETINE\FLUOXETINE HYDROCHLORIDE
     Dosage: 40 MG, 2X/DAY
     Route: 064

REACTIONS (5)
  - Small for dates baby [None]
  - Maternal drugs affecting foetus [None]
  - Maternal exposure during pregnancy [Unknown]
  - Foetal growth restriction [Recovered/Resolved]
  - Caesarean section [None]

NARRATIVE: CASE EVENT DATE: 20131115
